FAERS Safety Report 9548994 (Version 3)
Quarter: 2014Q3

REPORT INFORMATION
  Report Type: Report from Study
  Country: US (occurrence: US)
  Receive Date: 20130924
  Receipt Date: 20140706
  Transmission Date: 20150326
  Serious: Yes (Other)
  Sender: FDA-Public Use
  Company Number: US-ALEXION PHARMACEUTICALS INC.-A201302254

PATIENT

DRUGS (2)
  1. SOLIRIS [Suspect]
     Active Substance: ECULIZUMAB
     Indication: HAEMOLYTIC URAEMIC SYNDROME
     Dosage: 900 MG, UNK
     Route: 042
  2. SOLIRIS [Suspect]
     Active Substance: ECULIZUMAB
     Dosage: 1200 MG,Q2W
     Route: 042
     Dates: start: 201307

REACTIONS (11)
  - Confusional state [Unknown]
  - Vomiting [Unknown]
  - Fatigue [Unknown]
  - Amputation [Recovered/Resolved]
  - Dialysis [Unknown]
  - Diarrhoea [Unknown]
  - Central venous catheterisation [Unknown]
  - Decreased appetite [Unknown]
  - Abdominal pain [Unknown]
  - Fistula [Recovered/Resolved]
  - Nausea [Unknown]

NARRATIVE: CASE EVENT DATE: 201307
